FAERS Safety Report 21254233 (Version 2)
Quarter: 2022Q4

REPORT INFORMATION
  Report Type: Report from Study
  Country: CA (occurrence: CA)
  Receive Date: 20220825
  Receipt Date: 20221101
  Transmission Date: 20230113
  Serious: Yes (Hospitalization, Other)
  Sender: FDA-Public Use
  Company Number: CA-OTSUKA-2022_023733

PATIENT
  Sex: Female

DRUGS (3)
  1. CEDAZURIDINE\DECITABINE [Suspect]
     Active Substance: CEDAZURIDINE\DECITABINE
     Indication: Chronic myelomonocytic leukaemia
     Dosage: UNK
     Route: 065
     Dates: start: 20220411
  2. TASIGNA [Concomitant]
     Active Substance: NILOTINIB
     Indication: Product used for unknown indication
     Dosage: UNK
     Route: 065
  3. HYDROMORPHONE [Concomitant]
     Active Substance: HYDROMORPHONE
     Indication: Back pain
     Dosage: UNK
     Route: 065

REACTIONS (11)
  - Nephrolithiasis [Unknown]
  - Leukaemia [Unknown]
  - Chronic kidney disease [Unknown]
  - Immune system disorder [Unknown]
  - Ear pain [Unknown]
  - Nasopharyngitis [Unknown]
  - Pain in extremity [Unknown]
  - Peripheral swelling [Unknown]
  - Back pain [Unknown]
  - Influenza [Unknown]
  - Cough [Unknown]
